FAERS Safety Report 21773718 (Version 1)
Quarter: 2022Q4

REPORT INFORMATION
  Report Type: Report from Study
  Country: US (occurrence: US)
  Receive Date: 20221223
  Receipt Date: 20221223
  Transmission Date: 20230113
  Serious: No
  Sender: FDA-Public Use
  Company Number: US-ABBVIE-4209284

PATIENT
  Age: 19 Year
  Sex: Female

DRUGS (1)
  1. HUMIRA [Suspect]
     Active Substance: ADALIMUMAB
     Indication: Crohn^s disease
     Dosage: CESSATION DATE FOR ADVERSE EVENT BLOOD IN STOOL WAS 2022 BUT DUE TO SYSTEM LIMITATION IT WAS NOT ...
     Route: 058

REACTIONS (4)
  - Adverse food reaction [Unknown]
  - Haematochezia [Recovered/Resolved]
  - Nausea [Recovered/Resolved]
  - Vomiting [Recovered/Resolved]

NARRATIVE: CASE EVENT DATE: 20221028
